FAERS Safety Report 17882674 (Version 2)
Quarter: 2020Q3

REPORT INFORMATION
  Report Type: Spontaneous
  Country: US (occurrence: US)
  Receive Date: 20200610
  Receipt Date: 20200727
  Transmission Date: 20201103
  Serious: Yes (Life-Threatening, Other)
  Sender: FDA-Public Use
  Company Number: US-GILEAD-2020-0469816

PATIENT
  Age: 63 Year
  Sex: Female
  Weight: 95.3 kg

DRUGS (15)
  1. REMDESIVIR. [Suspect]
     Active Substance: REMDESIVIR
     Indication: COVID-19
     Dosage: 200MG X 1, 100MG X 1
     Route: 042
     Dates: start: 20200521, end: 20200522
  2. ZINC. [Concomitant]
     Active Substance: ZINC
  3. ASCORBIC ACID. [Concomitant]
     Active Substance: ASCORBIC ACID
  4. CEFTRIAXONE. [Concomitant]
     Active Substance: CEFTRIAXONE
  5. PANTOPRAZOLE [Concomitant]
     Active Substance: PANTOPRAZOLE
  6. MELATONIN [Concomitant]
     Active Substance: MELATONIN
  7. MORPHINE [Concomitant]
     Active Substance: MORPHINE
  8. ENOXAPARIN [Concomitant]
     Active Substance: ENOXAPARIN
  9. SUCRALFATE. [Concomitant]
     Active Substance: SUCRALFATE
  10. REMDESIVIR. [Suspect]
     Active Substance: REMDESIVIR
     Dosage: 100 MG, QD
     Route: 042
     Dates: start: 20200523, end: 20200525
  11. DILTIAZEM. [Concomitant]
     Active Substance: DILTIAZEM
     Indication: HEART RATE
     Dosage: UNK
     Dates: start: 20200527, end: 20200528
  12. HYDROCHLOROTHIAZIDE. [Concomitant]
     Active Substance: HYDROCHLOROTHIAZIDE
  13. DECADRON [Concomitant]
     Active Substance: DEXAMETHASONE
     Dosage: UNK
     Dates: start: 20200527, end: 20200527
  14. INSULIN [Concomitant]
     Active Substance: INSULIN NOS
  15. DECADRON [Concomitant]
     Active Substance: DEXAMETHASONE
     Dosage: UNK
     Dates: start: 20200526, end: 20200527

REACTIONS (1)
  - Atrial fibrillation [Recovered/Resolved]

NARRATIVE: CASE EVENT DATE: 20200527
